FAERS Safety Report 21787453 (Version 1)
Quarter: 2022Q4

REPORT INFORMATION
  Report Type: Spontaneous
  Country: IN (occurrence: IN)
  Receive Date: 20221228
  Receipt Date: 20221228
  Transmission Date: 20230113
  Serious: Yes (Other)
  Sender: FDA-Public Use
  Company Number: IN-MSNLABS-2022MSNLIT01599

PATIENT

DRUGS (7)
  1. CHLORPROMAZINE HYDROCHLORIDE [Suspect]
     Active Substance: CHLORPROMAZINE HYDROCHLORIDE
     Indication: Bipolar disorder
     Dosage: 100MG HS
     Route: 065
  2. DIVALPROEX SODIUM [Suspect]
     Active Substance: DIVALPROEX SODIUM
     Indication: Bipolar disorder
     Dosage: 750MG BD
     Route: 065
  3. HALOPERIDOL [Suspect]
     Active Substance: HALOPERIDOL
     Indication: Bipolar disorder
     Dosage: 5MG TID
     Route: 065
  4. LITHIUM [Suspect]
     Active Substance: LITHIUM
     Indication: Bipolar disorder
     Dosage: 300 MG BD
     Route: 065
  5. OLANZAPINE [Suspect]
     Active Substance: OLANZAPINE
     Indication: Bipolar disorder
     Dosage: 5 MG, 1 EACH IN MORNING AND AFTERNOON AND 2 IN THE NIGHT
     Route: 065
  6. PROPRANOLOL [Suspect]
     Active Substance: PROPRANOLOL HYDROCHLORIDE
     Indication: Bipolar disorder
     Dosage: 20MG BD
     Route: 065
  7. RISPERIDONE\TRIHEXYPHENIDYL HYDROCHLORIDE [Suspect]
     Active Substance: RISPERIDONE\TRIHEXYPHENIDYL HYDROCHLORIDE
     Indication: Bipolar disorder
     Dosage: 4MG + 2MG BD
     Route: 065

REACTIONS (1)
  - Drug ineffective [Unknown]
